FAERS Safety Report 7319550-3 (Version None)
Quarter: 2011Q1

REPORT INFORMATION
  Report Type: 
  Country: None (occurrence: None)
  Receive Date: 20110228
  Receipt Date: 20100517
  Transmission Date: 20110831
  Serious: No
  Sender: FDA-Public Use
  Company Number: A0860019A

PATIENT
  Age: 50 Year
  Sex: Male

DRUGS (5)
  1. LAMOTRIGINE [Suspect]
     Indication: DEPRESSION
     Dosage: 25MG PER DAY
     Route: 048
     Dates: start: 20100515
  2. CYMBALTA [Concomitant]
  3. FENTANYL-100 [Concomitant]
  4. ADDERALL 10 [Concomitant]
  5. MORPHINE SULFATE [Concomitant]

REACTIONS (1)
  - MUSCLE SPASMS [None]
